FAERS Safety Report 8493452-1 (Version None)
Quarter: 2012Q3

REPORT INFORMATION
  Report Type: 
  Country: None (occurrence: None)
  Receive Date: 20120706
  Receipt Date: 20120626
  Transmission Date: 20120928
  Serious: Yes (Hospitalization, Other)
  Sender: FDA-Public Use
  Company Number: US-ABBOTT-11P-163-0840859-00

PATIENT
  Sex: Male
  Weight: 70.824 kg

DRUGS (7)
  1. HUMIRA [Suspect]
     Indication: RHEUMATOID ARTHRITIS
     Route: 058
     Dates: start: 20101001, end: 20101201
  2. HUMIRA [Suspect]
     Dates: start: 20120329
  3. METHOTREXATE [Suspect]
     Indication: PRODUCT USED FOR UNKNOWN INDICATION
     Dates: start: 20100501, end: 20111201
  4. METHOTREXATE [Suspect]
     Dates: start: 20110401
  5. PLAQUENIL [Concomitant]
     Indication: PRODUCT USED FOR UNKNOWN INDICATION
     Dates: start: 20100201
  6. PREDNISONE TAB [Concomitant]
     Indication: PRODUCT USED FOR UNKNOWN INDICATION
     Dates: start: 20100201
  7. HUMIRA [Suspect]
     Dates: start: 20110201, end: 20110401

REACTIONS (6)
  - ARTHRALGIA [None]
  - RASH [None]
  - IMPAIRED HEALING [None]
  - RHEUMATOID ARTHRITIS [None]
  - BURSA INJURY [None]
  - OPEN WOUND [None]
